FAERS Safety Report 4907303-2 (Version None)
Quarter: 2006Q1

REPORT INFORMATION
  Report Type: 
  Country: None (occurrence: None)
  Receive Date: 20060208
  Receipt Date: 20060208
  Transmission Date: 20060701
  Serious: Yes (Hospitalization)
  Sender: FDA-Public Use
  Company Number: None

PATIENT
  Age: 45 Year
  Sex: Male
  Weight: 101.1521 kg

DRUGS (1)
  1. ASPIRIN [Suspect]
     Indication: MYALGIA
     Dosage: 81 MG PO QID 3 DAYS PRIOR TO ADMIT
     Route: 048

REACTIONS (5)
  - ALCOHOL USE [None]
  - BLOOD PRESSURE ORTHOSTATIC ABNORMAL [None]
  - DIVERTICULUM [None]
  - GASTRITIS [None]
  - RECTAL HAEMORRHAGE [None]
